FAERS Safety Report 23009765 (Version 5)
Quarter: 2024Q4

REPORT INFORMATION
  Report Type: Spontaneous
  Country: US (occurrence: US)
  Receive Date: 20230929
  Receipt Date: 20241121
  Transmission Date: 20250114
  Serious: Yes (Life-Threatening, Hospitalization, Other)
  Sender: CIPLA
  Company Number: US-CIPLA LTD.-2023US05716

PATIENT

DRUGS (2)
  1. BUPROPION [Suspect]
     Active Substance: BUPROPION
     Indication: Product used for unknown indication
     Dosage: 300 MG, UNK
     Route: 048
  2. OLANZAPINE [Suspect]
     Active Substance: OLANZAPINE
     Indication: Product used for unknown indication
     Dosage: 10 MG, UNK
     Route: 048

REACTIONS (13)
  - Toxicity to various agents [Recovered/Resolved]
  - Ventricular tachycardia [Recovered/Resolved]
  - Bundle branch block right [Recovered/Resolved]
  - Cardiogenic shock [Recovered/Resolved]
  - Electrocardiogram QRS complex prolonged [Unknown]
  - Bradycardia [Recovered/Resolved]
  - Loss of consciousness [Recovered/Resolved]
  - Hypotension [Recovered/Resolved]
  - Cardiac arrest [Recovered/Resolved]
  - Generalised tonic-clonic seizure [Recovered/Resolved]
  - Sinus tachycardia [Recovered/Resolved]
  - Seizure [Unknown]
  - Myoclonus [Unknown]
